FAERS Safety Report 8901130 (Version 3)
Quarter: 2013Q1

REPORT INFORMATION
  Report Type: Report from Study
  Country: US (occurrence: US)
  Receive Date: 20121109
  Receipt Date: 20130329
  Transmission Date: 20140127
  Serious: Yes (Other)
  Sender: FDA-Public Use
  Company Number: US-ROCHE-1153483

PATIENT
  Sex: 0

DRUGS (5)
  1. BEVACIZUMAB [Suspect]
     Indication: METASTASES TO LARGE INTESTINE
     Route: 065
  2. IRINOTECAN [Suspect]
     Indication: METASTASES TO LARGE INTESTINE
     Route: 065
  3. 5-FLUOROURACIL [Suspect]
     Indication: METASTASES TO LARGE INTESTINE
     Route: 065
  4. FOLINIC ACID [Suspect]
     Indication: METASTASES TO LARGE INTESTINE
     Route: 065
  5. OXALIPLATIN [Suspect]
     Indication: METASTASES TO LARGE INTESTINE
     Route: 065

REACTIONS (2)
  - Hepatic steatosis [Unknown]
  - Hepatic steatosis [Unknown]
